FAERS Safety Report 4342408-9 (Version None)
Quarter: 2004Q2

REPORT INFORMATION
  Report Type: 
  Country: None (occurrence: None)
  Receive Date: 20040421
  Receipt Date: 20040219
  Transmission Date: 20050107
  Serious: No
  Sender: FDA-Public Use
  Company Number: US-BRISTOL-MYERS SQUIBB COMPANY-12511358

PATIENT
  Age: 63 Year
  Sex: Female
  Weight: 64 kg

DRUGS (1)
  1. METAGLIP [Suspect]
     Indication: DIABETES MELLITUS
     Route: 048
     Dates: start: 20031201

REACTIONS (2)
  - BLOOD GLUCOSE FLUCTUATION [None]
  - WEIGHT DECREASED [None]
